FAERS Safety Report 4720770-2 (Version None)
Quarter: 2005Q3

REPORT INFORMATION
  Report Type: 
  Country: None (occurrence: None)
  Receive Date: 20050721
  Receipt Date: 20050711
  Transmission Date: 20060218
  Serious: Yes (Disabling)
  Sender: FDA-Public Use
  Company Number: IT-BRISTOL-MYERS SQUIBB COMPANY-13033410

PATIENT
  Age: 76 Year
  Sex: Male

DRUGS (1)
  1. COUMADIN [Suspect]
     Indication: HEART VALVE REPLACEMENT
     Route: 048
     Dates: start: 20050202

REACTIONS (3)
  - AORTIC ANEURYSM [None]
  - PAIN IN EXTREMITY [None]
  - SKIN ULCER [None]
